FAERS Safety Report 9848114 (Version 1)
Quarter: 2014Q1

REPORT INFORMATION
  Report Type: Spontaneous
  Country: US (occurrence: US)
  Receive Date: 20140128
  Receipt Date: 20140128
  Transmission Date: 20141002
  Serious: Yes (Other)
  Sender: FDA-Public Use
  Company Number: US-PFIZER INC-2014022923

PATIENT
  Age: 50 Year
  Sex: Female
  Weight: 65.76 kg

DRUGS (2)
  1. CHANTIX [Suspect]
     Indication: SMOKING CESSATION THERAPY
     Dosage: UNK
     Route: 048
     Dates: start: 2013, end: 2013
  2. LITHIUM [Concomitant]
     Indication: BIPOLAR I DISORDER
     Dosage: UNK

REACTIONS (5)
  - Suicidal ideation [Unknown]
  - Anger [Unknown]
  - Abnormal behaviour [Unknown]
  - Screaming [Unknown]
  - Feeling abnormal [Unknown]
